FAERS Safety Report 17999894 (Version 2)
Quarter: 2023Q4

REPORT INFORMATION
  Report Type: Spontaneous
  Country: US (occurrence: US)
  Receive Date: 20200709
  Receipt Date: 20231211
  Transmission Date: 20240110
  Serious: No
  Sender: FDA-Public Use
  Company Number: US-PFIZER INC-2020263112

PATIENT
  Age: 72 Year
  Sex: Female

DRUGS (1)
  1. XALKORI [Suspect]
     Active Substance: CRIZOTINIB
     Indication: Non-small cell lung cancer
     Dosage: 1 CAP ORALLY 2 TIMES A DAY X 30 DAYS
     Route: 048

REACTIONS (2)
  - Alopecia [Unknown]
  - Off label use [Unknown]
